FAERS Safety Report 7218151-5 (Version None)
Quarter: 2010Q4

REPORT INFORMATION
  Report Type: 
  Country: None (occurrence: None)
  Receive Date: 20101230
  Receipt Date: 20101214
  Transmission Date: 20110411
  Serious: Yes (Other)
  Sender: FDA-Public Use
  Company Number: FKO201000573

PATIENT
  Age: 75 Year
  Sex: Male

DRUGS (2)
  1. IFOSFAMIDE [Suspect]
     Indication: SARCOMA
  2. DOXORUBICIN HYDROCHLORIDE [Suspect]
     Indication: SARCOMA

REACTIONS (2)
  - METASTASES TO LUNG [None]
  - PNEUMOTHORAX [None]
